FAERS Safety Report 7859932-4 (Version None)
Quarter: 2011Q4

REPORT INFORMATION
  Report Type: 
  Country: None (occurrence: None)
  Receive Date: 20111025
  Receipt Date: 20111021
  Transmission Date: 20120403
  Serious: Yes (Life-Threatening, Hospitalization)
  Sender: FDA-Public Use
  Company Number: SP04508

PATIENT
  Age: 55 Year
  Sex: Female

DRUGS (6)
  1. CLAMOXYL (TABLETS) [Concomitant]
  2. XANAX [Concomitant]
  3. OSMOPREP [Suspect]
     Indication: BOWEL PREPARATION
     Dosage: (32 TABLETS),ORAL
     Route: 048
     Dates: start: 20110911, end: 20110912
  4. GENTAMICIN (INJECTION FOR INFUSION) [Concomitant]
  5. DIPRIVAN [Suspect]
     Indication: ANAESTHESIA
     Dosage: INTRAVENOUS
     Route: 042
     Dates: start: 20110912, end: 20110912
  6. SOTALEX (TABLETS) [Concomitant]

REACTIONS (15)
  - LIVER DISORDER [None]
  - HYPOVOLAEMIC SHOCK [None]
  - ANION GAP INCREASED [None]
  - MALAISE [None]
  - CARDIAC FAILURE [None]
  - CREATININE RENAL CLEARANCE DECREASED [None]
  - ASPARTATE AMINOTRANSFERASE INCREASED [None]
  - RENAL DISORDER [None]
  - CORONARY ARTERY STENOSIS [None]
  - ABDOMINAL PAIN [None]
  - MYOCARDIAL INFARCTION [None]
  - VOMITING [None]
  - BACK PAIN [None]
  - METABOLIC ACIDOSIS [None]
  - MULTI-ORGAN FAILURE [None]
